FAERS Safety Report 7587722-9 (Version None)
Quarter: 2011Q3

REPORT INFORMATION
  Report Type: 
  Country: None (occurrence: None)
  Receive Date: 20110704
  Receipt Date: 20110621
  Transmission Date: 20111222
  Serious: Yes (Hospitalization, Other)
  Sender: FDA-Public Use
  Company Number: US-ELI_LILLY_AND_COMPANY-US201106005742

PATIENT
  Sex: Female

DRUGS (5)
  1. ANTIHYPERTENSIVES [Concomitant]
  2. FORTEO [Suspect]
     Indication: OSTEOPOROSIS
     Dosage: 20 UG, QD
     Dates: start: 20110608
  3. BUSPAR [Concomitant]
  4. COUMADIN [Concomitant]
  5. DIURETICS [Concomitant]

REACTIONS (6)
  - PULMONARY EMBOLISM [None]
  - CARDIOMYOPATHY [None]
  - ANXIETY [None]
  - HEART RATE INCREASED [None]
  - ANGINA PECTORIS [None]
  - BLOOD PRESSURE DECREASED [None]
